FAERS Safety Report 7970239-7 (Version None)
Quarter: 2011Q4

REPORT INFORMATION
  Report Type: 
  Country: None (occurrence: None)
  Receive Date: 20111212
  Receipt Date: 20111201
  Transmission Date: 20120403
  Serious: Yes (Hospitalization)
  Sender: FDA-Public Use
  Company Number: US-SANOFI-AVENTIS-2011SA080273

PATIENT
  Age: 45 Year
  Sex: Male

DRUGS (3)
  1. ALL OTHER THERAPEUTIC PRODUCTS [Suspect]
     Indication: CORONARY ARTERY DISEASE
     Route: 065
     Dates: start: 20100514, end: 20100514
  2. PLAVIX [Suspect]
     Indication: ANTIPLATELET THERAPY
     Route: 048
     Dates: start: 20100515
  3. ASPIRIN [Suspect]
     Indication: ANTIPLATELET THERAPY
     Dates: start: 20100510

REACTIONS (2)
  - IN-STENT CORONARY ARTERY RESTENOSIS [None]
  - CHEST PAIN [None]
